FAERS Safety Report 17015841 (Version 1)
Quarter: 2019Q4

REPORT INFORMATION
  Report Type: Spontaneous
  Country: US (occurrence: US)
  Receive Date: 20191003
  Receipt Date: 20191003
  Transmission Date: 20200122
  Serious: Yes (Other)
  Sender: FDA-Public Use
  Company Number: None

PATIENT
  Age: 23 Year
  Sex: Female
  Weight: 72 kg

DRUGS (1)
  1. METHYLPHENIDATE ER 54MG [Suspect]
     Active Substance: METHYLPHENIDATE
     Indication: ATTENTION DEFICIT/HYPERACTIVITY DISORDER
     Dosage: ?          OTHER FREQUENCY:Q AM;?
     Route: 048
     Dates: start: 20190823, end: 20190829

REACTIONS (13)
  - Decreased appetite [None]
  - Headache [None]
  - Heart rate increased [None]
  - Nausea [None]
  - Abdominal pain upper [None]
  - Agitation [None]
  - Disturbance in attention [None]
  - Anxiety [None]
  - Fatigue [None]
  - Product substitution issue [None]
  - Therapeutic response shortened [None]
  - Frustration tolerance decreased [None]
  - Distractibility [None]

NARRATIVE: CASE EVENT DATE: 20190823
